FAERS Safety Report 6367358-8 (Version None)
Quarter: 2009Q3

REPORT INFORMATION
  Report Type: 
  Country: None (occurrence: None)
  Receive Date: 20090921
  Receipt Date: 20090910
  Transmission Date: 20100115
  Serious: No
  Sender: FDA-Public Use
  Company Number: US-B.I. PHARMACEUTICALS,INC./RIDGEFIELD-2009-BP-09419BP

PATIENT
  Age: 63 Year
  Sex: Male

DRUGS (7)
  1. FLOMAX [Suspect]
     Indication: BENIGN PROSTATIC HYPERPLASIA
     Dosage: 0.4 MG
     Route: 048
     Dates: start: 20090801
  2. FLOMAX [Suspect]
     Indication: POLLAKIURIA
  3. FLOMAX [Suspect]
     Indication: URINE FLOW DECREASED
  4. ASPIRIN [Concomitant]
     Indication: PROPHYLAXIS
  5. ENALAPRIL MALEATE [Concomitant]
     Dosage: 10 MG
  6. PRAVASTATIN [Concomitant]
     Dosage: 10 MG
  7. ASPIRIN [Concomitant]
     Dosage: 162 MG

REACTIONS (1)
  - DRUG INEFFECTIVE [None]
